FAERS Safety Report 19435823 (Version 1)
Quarter: 2021Q2

REPORT INFORMATION
  Report Type: Spontaneous
  Country: JP (occurrence: JP)
  Receive Date: 20210618
  Receipt Date: 20210618
  Transmission Date: 20210717
  Serious: Yes (Hospitalization, Other)
  Sender: FDA-Public Use
  Company Number: JP-SA-2021SA192899

PATIENT
  Age: 64 Year
  Sex: Female

DRUGS (4)
  1. PANITUMUMAB [Concomitant]
     Active Substance: PANITUMUMAB
     Dosage: UNK
     Dates: start: 202003
  2. FLUOROURACIL. [Concomitant]
     Active Substance: FLUOROURACIL
     Dosage: UNK
     Dates: start: 202003
  3. ELPLAT [Suspect]
     Active Substance: OXALIPLATIN
     Indication: RECTAL CANCER
     Dosage: UNK UNK, ONCE IN 2WEEKS
     Route: 041
     Dates: start: 202003
  4. LEVOFOLINATE CALCIUM [Concomitant]
     Active Substance: LEVOLEUCOVORIN CALCIUM
     Dosage: UNK
     Dates: start: 202003

REACTIONS (2)
  - Walled-off pancreatic necrosis [Recovering/Resolving]
  - Pancreatitis [Recovering/Resolving]
